FAERS Safety Report 10924681 (Version 1)
Quarter: 2015Q1

REPORT INFORMATION
  Report Type: Spontaneous
  Country: US (occurrence: None)
  Receive Date: 20150316
  Receipt Date: 20150316
  Transmission Date: 20150721
  Serious: No
  Sender: FDA-Public Use
  Company Number: None

PATIENT
  Age: 59 Year
  Sex: Female
  Weight: 70.76 kg

DRUGS (9)
  1. VITAMIN E [Concomitant]
     Active Substance: .ALPHA.-TOCOPHEROL
  2. VITAMIN D [Concomitant]
     Active Substance: CHOLECALCIFEROL
  3. URSO FORTE [Concomitant]
     Active Substance: URSODIOL
  4. CRESTOR [Suspect]
     Active Substance: ROSUVASTATIN CALCIUM
     Indication: BLOOD CHOLESTEROL INCREASED
     Route: 048
     Dates: start: 20140115, end: 20150308
  5. NORVASC [Concomitant]
     Active Substance: AMLODIPINE BESYLATE
  6. ESTER C [Concomitant]
  7. CALCIUM [Concomitant]
     Active Substance: CALCIUM
  8. MULTI VITAMIN [Concomitant]
     Active Substance: VITAMINS
  9. PREVACID [Concomitant]
     Active Substance: LANSOPRAZOLE

REACTIONS (7)
  - Myalgia [None]
  - Dysstasia [None]
  - Hypoaesthesia [None]
  - Pain in extremity [None]
  - Paraesthesia [None]
  - Discomfort [None]
  - Gait disturbance [None]

NARRATIVE: CASE EVENT DATE: 20141002
